FAERS Safety Report 10488246 (Version 2)
Quarter: 2014Q4

REPORT INFORMATION
  Report Type: Spontaneous
  Country: JP (occurrence: JP)
  Receive Date: 20141002
  Receipt Date: 20141013
  Transmission Date: 20150528
  Serious: Yes (Other)
  Sender: FDA-Public Use
  Company Number: PHHY2014JP124316

PATIENT
  Age: 51 Year
  Sex: Male

DRUGS (5)
  1. OXALIPLATIN. [Suspect]
     Active Substance: OXALIPLATIN
     Indication: METASTASES TO LIVER
     Dosage: 100 MG/M2, DAY 01
     Route: 065
  2. 5 FLUORO URACIL [Concomitant]
     Active Substance: FLUOROURACIL
     Dosage: 600 MG/M2, DAY 1, 2
     Route: 041
  3. FOLINIC ACID [Concomitant]
     Active Substance: LEUCOVORIN
     Indication: METASTASES TO LIVER
     Dosage: 100 MG/M2, DAY 1, DAY 2
     Route: 065
  4. 5 FLUORO URACIL [Concomitant]
     Active Substance: FLUOROURACIL
     Indication: METASTASES TO LIVER
     Dosage: 400 MG/M2, DAY 1, 2
     Route: 040
  5. BEVACIZUMAB [Concomitant]
     Active Substance: BEVACIZUMAB
     Indication: METASTASES TO LIVER
     Dosage: 5 MG/KG, DAY 1
     Route: 065

REACTIONS (10)
  - Anaemia [Unknown]
  - Portal hypertension [Unknown]
  - White blood cell count increased [Unknown]
  - Spleen disorder [Unknown]
  - Splenomegaly [Unknown]
  - Platelet count decreased [Recovered/Resolved]
  - Depressed level of consciousness [Unknown]
  - Stoma site haemorrhage [Recovered/Resolved]
  - Hypotension [Unknown]
  - Hypersensitivity [Unknown]
